FAERS Safety Report 17710590 (Version 1)
Quarter: 2020Q2

REPORT INFORMATION
  Report Type: Spontaneous
  Country: PL (occurrence: PL)
  Receive Date: 20200427
  Receipt Date: 20200427
  Transmission Date: 20200714
  Serious: Yes (Disabling, Other)
  Sender: FDA-Public Use
  Company Number: NVSC2020PL111081

PATIENT
  Age: 35 Year
  Sex: Male
  Weight: 88 kg

DRUGS (6)
  1. MONOPROST [Suspect]
     Active Substance: LATANOPROST
     Indication: GLAUCOMA
     Dosage: UNK
     Route: 065
     Dates: start: 20190825, end: 20190826
  2. ROZAPROST [Suspect]
     Active Substance: LATANOPROST
     Indication: GLAUCOMA
     Dosage: 1 GTT, QD (2 X 1 (ONE EYE DROP IN THE EACH EYE ONCE DAILY)
     Route: 065
     Dates: start: 201603, end: 20190825
  3. TOBRADEX [Suspect]
     Active Substance: DEXAMETHASONE\TOBRAMYCIN
     Indication: PRODUCT USED FOR UNKNOWN INDICATION
     Dosage: UNK
     Route: 065
     Dates: start: 20190826, end: 20190906
  4. ROZAPROST [Suspect]
     Active Substance: LATANOPROST
     Dosage: 1 GTT, QD (2 X 1 (ONE EYE DROP IN THE EACH EYE ONCE DAILY)
     Route: 065
     Dates: start: 2018
  5. XALACOM [Suspect]
     Active Substance: LATANOPROST\TIMOLOL MALEATE
     Indication: GLAUCOMA
     Dosage: UNK
     Route: 065
     Dates: start: 20190912
  6. ROZAPROST [Suspect]
     Active Substance: LATANOPROST
     Dosage: 1 GTT, QD (2 X 1 (ONE EYE DROP IN THE EACH EYE ONCE DAILY)
     Route: 065
     Dates: start: 2018

REACTIONS (12)
  - Blepharitis [Not Recovered/Not Resolved]
  - Ocular hyperaemia [Not Recovered/Not Resolved]
  - Vision blurred [Not Recovered/Not Resolved]
  - Eye pain [Not Recovered/Not Resolved]
  - Drug ineffective [Unknown]
  - Visual field defect [Not Recovered/Not Resolved]
  - Headache [Not Recovered/Not Resolved]
  - Eye oedema [Not Recovered/Not Resolved]
  - Visual acuity reduced [Not Recovered/Not Resolved]
  - Eye irritation [Not Recovered/Not Resolved]
  - Hyperhidrosis [Not Recovered/Not Resolved]
  - Dry eye [Not Recovered/Not Resolved]

NARRATIVE: CASE EVENT DATE: 201906
